FAERS Safety Report 10014041 (Version 1)
Quarter: 2014Q1

REPORT INFORMATION
  Report Type: Spontaneous
  Country: IT (occurrence: IT)
  Receive Date: 20140317
  Receipt Date: 20140317
  Transmission Date: 20141002
  Serious: Yes (Hospitalization)
  Sender: FDA-Public Use
  Company Number: PHHY2014IT029325

PATIENT
  Age: 66 Year
  Sex: Male

DRUGS (9)
  1. IRBESARTAN [Suspect]
     Indication: HYPERTENSION
     Dosage: 300 MG, QD
     Route: 048
     Dates: start: 20130101, end: 20140210
  2. SPIRONOLACTONE [Suspect]
     Indication: HYPERTENSION
     Dosage: 50 MG, QD
     Route: 048
     Dates: start: 20130101, end: 20140210
  3. LASIX [Concomitant]
     Dosage: 25 MG, UNK
  4. CARDIOASPIRIN [Concomitant]
     Dosage: 100 MG, UNK
     Route: 048
  5. DILATREND [Concomitant]
     Dosage: 6.25 MG, UNK
     Route: 048
  6. ATORVASTATIN [Concomitant]
     Dosage: 20 MG, UNK
     Route: 048
  7. RANITIDINE [Concomitant]
     Dosage: 150 MG, UNK
  8. TRIMETAZIDINE [Concomitant]
     Route: 048
  9. HYDROCHLOROTHIAZIDE [Concomitant]
     Dosage: 35 MG, UNK
     Route: 048

REACTIONS (5)
  - Abdominal pain upper [Unknown]
  - Angina unstable [Unknown]
  - Cold sweat [Unknown]
  - Nausea [Unknown]
  - Vomiting [Unknown]
